FAERS Safety Report 11066369 (Version 1)
Quarter: 2015Q2

REPORT INFORMATION
  Report Type: Spontaneous
  Country: GB (occurrence: None)
  Receive Date: 20150423
  Receipt Date: 20150423
  Transmission Date: 20150821
  Serious: No
  Sender: FDA-Public Use
  Company Number: 2015GB0184

PATIENT
  Age: 0 Day
  Sex: Male

DRUGS (2)
  1. KINERET [Suspect]
     Active Substance: ANAKINRA
     Route: 064
     Dates: end: 20140530
  2. PARACETAMOL [Concomitant]
     Active Substance: ACETAMINOPHEN

REACTIONS (4)
  - Maternal drugs affecting foetus [None]
  - Caesarean section [None]
  - Foetal exposure during pregnancy [None]
  - Talipes [None]

NARRATIVE: CASE EVENT DATE: 20150207
